FAERS Safety Report 4390075-0 (Version None)
Quarter: 2004Q2

REPORT INFORMATION
  Report Type: 
  Country: None (occurrence: None)
  Receive Date: 20040630
  Receipt Date: 20040615
  Transmission Date: 20050107
  Serious: Yes (Hospitalization)
  Sender: FDA-Public Use
  Company Number: JP-JNJFOC-20040203201

PATIENT
  Age: 66 Year
  Sex: Female
  Weight: 49 kg

DRUGS (23)
  1. REMICADE [Suspect]
     Indication: RHEUMATOID ARTHRITIS
     Dosage: 3 MG/KG, 1 IN 1 AS NECESSARY, INTRAVENOUS DRIP (SEE IMAGE)
     Route: 041
     Dates: start: 20031125, end: 20031125
  2. REMICADE [Suspect]
     Indication: RHEUMATOID ARTHRITIS
     Dosage: 3 MG/KG, 1 IN 1 AS NECESSARY, INTRAVENOUS DRIP (SEE IMAGE)
     Route: 041
     Dates: start: 20031212, end: 20031212
  3. REMICADE [Suspect]
     Indication: RHEUMATOID ARTHRITIS
     Dosage: 3 MG/KG, 1 IN 1 AS NECESSARY, INTRAVENOUS DRIP (SEE IMAGE)
     Route: 041
     Dates: start: 20040109, end: 20040109
  4. PREDNISOLONE [Suspect]
     Indication: RHEUMATOID ARTHRITIS
     Dosage: SEE IMAGE
     Route: 048
     Dates: start: 19991222, end: 20000402
  5. PREDNISOLONE [Suspect]
     Indication: RHEUMATOID ARTHRITIS
     Dosage: SEE IMAGE
     Route: 048
     Dates: start: 20000403, end: 20020918
  6. PREDNISOLONE [Suspect]
     Indication: RHEUMATOID ARTHRITIS
     Dosage: SEE IMAGE
     Route: 048
     Dates: start: 20021219
  7. RHEUMATREX [Suspect]
     Indication: DRUG USE FOR UNKNOWN INDICATION
     Dosage: SEE IMAGE
     Route: 065
     Dates: start: 19991222, end: 20000913
  8. RHEUMATREX [Suspect]
     Indication: DRUG USE FOR UNKNOWN INDICATION
     Dosage: SEE IMAGE
     Route: 065
     Dates: start: 20000914, end: 20010212
  9. RHEUMATREX [Suspect]
     Indication: DRUG USE FOR UNKNOWN INDICATION
     Dosage: SEE IMAGE
     Route: 065
     Dates: start: 20010213, end: 20010924
  10. RHEUMATREX [Suspect]
     Indication: DRUG USE FOR UNKNOWN INDICATION
     Dosage: SEE IMAGE
     Route: 065
     Dates: start: 20010925, end: 20011104
  11. RHEUMATREX [Suspect]
     Indication: DRUG USE FOR UNKNOWN INDICATION
     Dosage: SEE IMAGE
     Route: 065
     Dates: start: 20011105, end: 20020120
  12. RHEUMATREX [Suspect]
     Indication: DRUG USE FOR UNKNOWN INDICATION
     Dosage: SEE IMAGE
     Route: 065
     Dates: start: 20020121, end: 20020609
  13. RHEUMATREX [Suspect]
     Indication: DRUG USE FOR UNKNOWN INDICATION
     Dosage: SEE IMAGE
     Route: 065
     Dates: start: 20020610, end: 20021117
  14. RHEUMATREX [Suspect]
     Indication: DRUG USE FOR UNKNOWN INDICATION
     Dosage: SEE IMAGE
     Route: 065
     Dates: start: 20021118, end: 20021208
  15. RHEUMATREX [Suspect]
     Indication: DRUG USE FOR UNKNOWN INDICATION
     Dosage: SEE IMAGE
     Route: 065
     Dates: start: 20021209, end: 20030430
  16. RHEUMATREX [Suspect]
     Indication: DRUG USE FOR UNKNOWN INDICATION
     Dosage: SEE IMAGE
     Route: 065
     Dates: start: 20030501, end: 20030618
  17. RHEUMATREX [Suspect]
     Indication: DRUG USE FOR UNKNOWN INDICATION
     Dosage: SEE IMAGE
     Route: 065
     Dates: start: 20030619, end: 20030912
  18. RHEUMATREX [Suspect]
     Indication: DRUG USE FOR UNKNOWN INDICATION
     Dosage: SEE IMAGE
     Route: 065
     Dates: start: 20030913, end: 20031010
  19. RHEUMATREX [Suspect]
     Indication: DRUG USE FOR UNKNOWN INDICATION
     Dosage: SEE IMAGE
     Route: 065
     Dates: start: 20031011, end: 20040127
  20. PEON (ZALTOPROFEN) TABLETS [Concomitant]
  21. FOLIAMIN (FOLIC ACID) TABLETS [Concomitant]
  22. ZEPOLAS (FLURBIPROFEN) UNKNOWN [Concomitant]
  23. FAMOTIDINE [Concomitant]

REACTIONS (16)
  - ANOREXIA [None]
  - BACILLUS INFECTION [None]
  - BACTERIAL INFECTION [None]
  - BLOOD DISORDER [None]
  - C-REACTIVE PROTEIN INCREASED [None]
  - DISSEMINATED TUBERCULOSIS [None]
  - DRUG INEFFECTIVE [None]
  - DRUG INTERACTION [None]
  - HAEMOGLOBIN DECREASED [None]
  - HEPATIC STEATOSIS [None]
  - HEPATITIS B POSITIVE [None]
  - HEPATOCELLULAR DAMAGE [None]
  - HEPATOMEGALY [None]
  - IMMUNOSUPPRESSION [None]
  - PLATELET COUNT DECREASED [None]
  - PRURITUS [None]
